FAERS Safety Report 7515834-4 (Version None)
Quarter: 2011Q2

REPORT INFORMATION
  Report Type: 
  Country: None (occurrence: None)
  Receive Date: 20110601
  Receipt Date: 20110518
  Transmission Date: 20111010
  Serious: Yes (Death)
  Sender: FDA-Public Use
  Company Number: DK-BAYER-2011-042460

PATIENT
  Age: 65 Year
  Sex: Male

DRUGS (5)
  1. SORAFENIB (RAF KINASE INHIBITOR) [Suspect]
     Indication: METASTATIC RENAL CELL CARCINOMA
     Dosage: UNK
     Dates: start: 20090923
  2. OXYCODONE HCL [Concomitant]
     Dosage: UNK
  3. PINEX [Concomitant]
     Dosage: UNK
  4. LANSOPRAZOLE [Concomitant]
     Dosage: UNK
  5. OXYCONTIN [Concomitant]
     Dosage: UNK

REACTIONS (1)
  - DEATH [None]
